FAERS Safety Report 13134391 (Version 1)
Quarter: 2017Q1

REPORT INFORMATION
  Report Type: Spontaneous
  Country: US (occurrence: US)
  Receive Date: 20170120
  Receipt Date: 20170120
  Transmission Date: 20170428
  Serious: Yes (Death)
  Sender: FDA-Public Use
  Company Number: US-SAGENTPRD-2017-US-000007

PATIENT
  Sex: 0

DRUGS (1)
  1. COLISTIMETHATE FOR INJECTION [Suspect]
     Active Substance: COLISTIMETHATE SODIUM
     Dosage: 5.0 MG/KG/DAY

REACTIONS (2)
  - Nephropathy toxic [Unknown]
  - Cystic fibrosis [Fatal]
